FAERS Safety Report 7902357-3 (Version None)
Quarter: 2011Q4

REPORT INFORMATION
  Report Type: 
  Country: None (occurrence: None)
  Receive Date: 20111108
  Receipt Date: 20111103
  Transmission Date: 20120403
  Serious: Yes (Hospitalization)
  Sender: FDA-Public Use
  Company Number: FI-ABBOTT-11P-055-0728053-00

PATIENT
  Sex: Male

DRUGS (2)
  1. NALTREXONE HYDROCHLORIDE [Concomitant]
     Indication: PRODUCT USED FOR UNKNOWN INDICATION
  2. HUMIRA [Suspect]
     Indication: ARTHRITIS REACTIVE
     Route: 058
     Dates: start: 20070201, end: 20110601

REACTIONS (6)
  - BLOOD ALBUMIN DECREASED [None]
  - DRUG EFFECT DECREASED [None]
  - BLOOD PRESSURE DECREASED [None]
  - ILL-DEFINED DISORDER [None]
  - C-REACTIVE PROTEIN INCREASED [None]
  - NEPHROTIC SYNDROME [None]
